FAERS Safety Report 24217316 (Version 1)
Quarter: 2024Q3

REPORT INFORMATION
  Report Type: Spontaneous
  Country: SE (occurrence: SE)
  Receive Date: 20240816
  Receipt Date: 20240816
  Transmission Date: 20241017
  Serious: Yes (Other)
  Sender: TEVA
  Company Number: None

PATIENT
  Sex: Female

DRUGS (5)
  1. PREDNISOLONE [Suspect]
     Active Substance: PREDNISOLONE
     Indication: Blood cholesterol increased
     Route: 065
     Dates: start: 20211210
  2. Calcichew-D3 Citron [Concomitant]
     Indication: Product used for unknown indication
     Route: 065
  3. Hydrochlorothiazide Bluefish [Concomitant]
     Indication: Product used for unknown indication
     Route: 065
  4. OMEPRAZOLE [Concomitant]
     Active Substance: OMEPRAZOLE
     Indication: Product used for unknown indication
     Route: 065
  5. CANDESARTAN [Concomitant]
     Active Substance: CANDESARTAN
     Indication: Product used for unknown indication
     Route: 065

REACTIONS (8)
  - Optic nerve injury [Unknown]
  - Osteoporosis prophylaxis [Unknown]
  - Dyspnoea [Unknown]
  - Pain [Unknown]
  - Photophobia [Unknown]
  - Cushing^s syndrome [Unknown]
  - Intraocular pressure increased [Unknown]
  - Osteoporosis [Unknown]

NARRATIVE: CASE EVENT DATE: 20221201
